FAERS Safety Report 19477508 (Version 1)
Quarter: 2021Q2

REPORT INFORMATION
  Report Type: Spontaneous
  Country: US (occurrence: US)
  Receive Date: 20210630
  Receipt Date: 20210630
  Transmission Date: 20210717
  Serious: Yes (Death, Other)
  Sender: FDA-Public Use
  Company Number: US-SA-2021SA215103

PATIENT
  Age: 51 Year
  Sex: Male

DRUGS (1)
  1. FABRAZYME [Suspect]
     Active Substance: AGALSIDASE BETA
     Indication: FABRY^S DISEASE
     Dosage: UNK
     Route: 065
     Dates: start: 1991

REACTIONS (6)
  - Hypophagia [Unknown]
  - Fatigue [Unknown]
  - Cardiac disorder [Unknown]
  - Death [Fatal]
  - Dialysis [Unknown]
  - Vomiting [Unknown]

NARRATIVE: CASE EVENT DATE: 20201208
